FAERS Safety Report 13854767 (Version 1)
Quarter: 2017Q3

REPORT INFORMATION
  Report Type: Spontaneous
  Country: US (occurrence: US)
  Receive Date: 20170810
  Receipt Date: 20170810
  Transmission Date: 20171127
  Serious: Yes (Other)
  Sender: FDA-Public Use
  Company Number: US-WEST-WARD PHARMACEUTICALS CORP.-US-H14001-17-02844

PATIENT
  Sex: Female

DRUGS (1)
  1. METHOTREXATE. [Suspect]
     Active Substance: METHOTREXATE
     Indication: PRODUCT USED FOR UNKNOWN INDICATION
     Route: 065

REACTIONS (17)
  - Atrophy [Unknown]
  - Joint dislocation [Unknown]
  - Joint contracture [Unknown]
  - Oedema [Unknown]
  - Neck pain [Unknown]
  - Skin necrosis [Unknown]
  - Akinesia [Unknown]
  - Spinal osteoarthritis [Unknown]
  - Epidermal necrosis [Unknown]
  - Dry eye [Unknown]
  - Pain in extremity [Unknown]
  - Joint range of motion decreased [Unknown]
  - Joint crepitation [Unknown]
  - Hand deformity [Unknown]
  - Synovitis [Unknown]
  - Insomnia [Unknown]
  - Arthralgia [Unknown]
